FAERS Safety Report 9171229 (Version 2)
Quarter: 2013Q2

REPORT INFORMATION
  Report Type: Report from Study
  Country: FR (occurrence: FR)
  Receive Date: 20130319
  Receipt Date: 20130509
  Transmission Date: 20140414
  Serious: Yes (Hospitalization)
  Sender: FDA-Public Use
  Company Number: FR-ROCHE-1203307

PATIENT
  Age: 70 Year
  Sex: Male

DRUGS (4)
  1. MYCOPHENOLATE MOFETIL [Suspect]
     Indication: RENAL TRANSPLANT
     Route: 065
     Dates: start: 20120815
  2. BELATACEPT [Suspect]
     Indication: RENAL TRANSPLANT
     Route: 042
     Dates: start: 20060819
  3. PREDNISOLONE ACETATE [Suspect]
     Indication: RENAL TRANSPLANT
     Route: 065
     Dates: start: 20070628
  4. APROVEL [Concomitant]
     Route: 065
     Dates: start: 20121129

REACTIONS (1)
  - Sepsis [Recovered/Resolved]
